FAERS Safety Report 4549071-2 (Version None)
Quarter: 2005Q1

REPORT INFORMATION
  Report Type: 
  Country: None (occurrence: None)
  Receive Date: 20041227
  Receipt Date: 20041021
  Transmission Date: 20050727
  Serious: No
  Sender: FDA-Public Use
  Company Number: 04P-163-0262528-00

PATIENT
  Age: 71 Year
  Sex: Male
  Weight: 79.3795 kg

DRUGS (13)
  1. HUMIRA [Suspect]
     Indication: RHEUMATOID ARTHRITIS
     Dosage: 40 MG, 1 IN 2 WK, SUBCUTANEOUS
     Route: 058
     Dates: start: 20040405
  2. ROFECOXIB [Suspect]
     Indication: RHEUMATOID ARTHRITIS
     Dosage: PER ORAL
     Route: 048
  3. METHOTREXATE SODIUM [Concomitant]
  4. FOLIC ACID [Concomitant]
  5. ACETAMINOPHEN [Concomitant]
  6. AMITRIPTYLINE [Concomitant]
  7. PREDNISONE [Concomitant]
  8. MULTI-VITAMINS [Concomitant]
  9. TOCOPHEROL CONCENTRATE CAP [Concomitant]
  10. ALENDRONATE SODIUM [Concomitant]
  11. ERGOCALCIFEROL [Concomitant]
  12. CALCIUM GLUCONATE [Concomitant]
  13. MAGNESIUM [Concomitant]

REACTIONS (1)
  - NEOPLASM PROSTATE [None]
